FAERS Safety Report 15077737 (Version 3)
Quarter: 2019Q1

REPORT INFORMATION
  Report Type: Spontaneous
  Country: FI (occurrence: FI)
  Receive Date: 20180627
  Receipt Date: 20190214
  Transmission Date: 20190417
  Serious: Yes (Congenital Anomaly, Other)
  Sender: FDA-Public Use
  Company Number: FI-MYLANLABS-2018M1045583

PATIENT
  Sex: Male

DRUGS (28)
  1. EMGESAN 250 MG TABLETIT [Suspect]
     Active Substance: MAGNESIUM HYDROXIDE
     Dosage: 125 MG, PRN
     Route: 064
     Dates: start: 20171020
  2. KETIPINOR [Suspect]
     Active Substance: QUETIAPINE FUMARATE
     Dosage: 100 MG, 50 MG + 50 MG + 200 MG DAILY, ADDITIONALLY AS NEEDED 100 MG (MAX 400 MG/DAY)
     Route: 064
     Dates: start: 20170922
  3. OXAMIN [Suspect]
     Active Substance: OXAZEPAM
     Dosage: STRENGTH: 15MG ; 15-30MG WHEN NEEDED, MAX. 30MG PER DAY
     Route: 064
     Dates: start: 20170922
  4. SEROQUEL [Suspect]
     Active Substance: QUETIAPINE FUMARATE
     Dosage: STRENGTH: 400 MG
     Route: 064
     Dates: start: 20170824
  5. KETIPINOR [Suspect]
     Active Substance: QUETIAPINE FUMARATE
     Dosage: 2 TABLETS ONCE A DAY AND ADDITIONALLY 100 MG IF NEEDED (MAXIMUM 300 MG A DAY
     Route: 064
     Dates: start: 20170824
  6. SEROQUEL [Suspect]
     Active Substance: QUETIAPINE FUMARATE
     Indication: PRODUCT USED FOR UNKNOWN INDICATION
     Dosage: 500 MG, QD
     Route: 064
     Dates: start: 20171020
  7. OXAMIN [Suspect]
     Active Substance: OXAZEPAM
     Indication: PRODUCT USED FOR UNKNOWN INDICATION
     Dosage: 45 MG, QD
     Route: 064
     Dates: start: 20170824
  8. PROPRANOLOL [Suspect]
     Active Substance: PROPRANOLOL HYDROCHLORIDE
     Indication: ANAEMIA
     Dosage: 1 DF, QD
     Route: 064
     Dates: start: 20171020
  9. SEROQUEL [Suspect]
     Active Substance: QUETIAPINE FUMARATE
     Dosage: STRENGTH: 400 MG
     Route: 064
     Dates: start: 20170922
  10. EMGESAN 250 MG TABLETIT [Suspect]
     Active Substance: MAGNESIUM HYDROXIDE
     Dosage: 125 MG, DAILY (MAX 250 MG/DAY)
     Route: 064
     Dates: start: 20170922
  11. KETIPINOR [Suspect]
     Active Substance: QUETIAPINE FUMARATE
     Indication: PRODUCT USED FOR UNKNOWN INDICATION
     Dosage: 100 MG 1-2 TAB/DAY (MAX 600 MG/DAY)
     Route: 064
     Dates: start: 20170505
  12. KETIPINOR [Suspect]
     Active Substance: QUETIAPINE FUMARATE
     Dosage: 200 MG, ONCE DAILY (QD)
     Route: 064
  13. SEROQUEL [Suspect]
     Active Substance: QUETIAPINE FUMARATE
     Indication: PRODUCT USED FOR UNKNOWN INDICATION
     Dosage: 1 DF, QD
     Route: 064
     Dates: start: 20170824
  14. LORAZEPAM. [Suspect]
     Active Substance: LORAZEPAM
     Indication: PRODUCT USED FOR UNKNOWN INDICATION
     Dosage: STRENGTH: 2MG/ML; 4MG WHEN NEEDED, MAX. 8MG PER DAY
     Route: 064
     Dates: start: 20171020
  15. PANADOL FORTE                      /00020001/ [Suspect]
     Active Substance: ACETAMINOPHEN
     Indication: PRODUCT USED FOR UNKNOWN INDICATION
     Dosage: 1 DF, PRN,1 G, AS NEEDED (MAX 3 G/DAY)
     Route: 064
     Dates: start: 20171020
  16. KETIPINOR [Suspect]
     Active Substance: QUETIAPINE FUMARATE
     Dosage: 100 MG + 100 MG + 2001 TABLET (MAX 400 MG/DAY)
     Route: 064
     Dates: start: 20171020
  17. OPAMOX [Suspect]
     Active Substance: OXAZEPAM
     Dosage: 15 MG?30 MG AS NEEDED
     Route: 064
     Dates: start: 20171020
  18. OPAMOX [Suspect]
     Active Substance: OXAZEPAM
     Dosage: 15 MILLIGRAM, QD (15 MG 3XDAY, AND AS NEEDED 15-30 MG (MAX 30 MG/DAY)   )
     Route: 064
     Dates: start: 20170922
  19. SEROQUEL [Suspect]
     Active Substance: QUETIAPINE FUMARATE
     Dosage: 300 MG, 1 TABLET 3 TIMES DAILY
     Route: 064
  20. EMGESAN 250 MG TABLETIT [Suspect]
     Active Substance: MAGNESIUM HYDROXIDE
     Indication: PRODUCT USED FOR UNKNOWN INDICATION
     Dosage: 125 MG, PRN, MAX. 250 MG A DAY
     Route: 064
     Dates: start: 20170824
  21. KETIPINOR [Suspect]
     Active Substance: QUETIAPINE FUMARATE
     Dosage: 100 MILLIGRAM 100 MG, 1-2 TABS DAILY
     Route: 064
  22. TENOX                              /00393701/ [Suspect]
     Active Substance: TEMAZEPAM
     Indication: PRODUCT USED FOR UNKNOWN INDICATION
     Dosage: 1 TABLET IN THE EVENING AS NEEDED (MAX 20MG/DAY)
     Route: 064
     Dates: start: 20170505
  23. SEROQUEL [Suspect]
     Active Substance: QUETIAPINE FUMARATE
     Dosage: 400 MG, 1 TAB DAILY
     Route: 064
     Dates: start: 20170922
  24. TEMESTA                            /00273201/ [Suspect]
     Active Substance: LORAZEPAM
     Indication: PRODUCT USED FOR UNKNOWN INDICATION
     Dosage: 1 MILLIGRAM, QD,1 MG, 2X/DAY (MAX 3 MG/DAY)
     Route: 064
     Dates: start: 20170824
  25. OXAMIN [Suspect]
     Active Substance: OXAZEPAM
     Dosage: STRENGTH: 15MG ; 15-30MG WHEN NEEDED, MAX. 30MG PER DAY
     Route: 064
     Dates: start: 20171020
  26. OPAMOX [Suspect]
     Active Substance: OXAZEPAM
     Indication: PRODUCT USED FOR UNKNOWN INDICATION
     Dosage: 1 DF, TID
     Route: 064
     Dates: start: 20170922
  27. OPAMOX [Suspect]
     Active Substance: OXAZEPAM
     Dosage: 15MG TABLETS WHEN NEEDED, MAX. 45MG PER DAY
     Route: 064
     Dates: start: 20170824
  28. OPAMOX [Suspect]
     Active Substance: OXAZEPAM
     Dosage: 15 MG, AS NEEDED (MAX 45MG/DAY)
     Route: 064

REACTIONS (18)
  - Poor sucking reflex [Unknown]
  - Foot deformity [Unknown]
  - Heterotaxia [Unknown]
  - Congenital renal disorder [Unknown]
  - Low birth weight baby [Unknown]
  - Live birth [Unknown]
  - Nephropathy [Unknown]
  - Heart disease congenital [Unknown]
  - Head deformity [Not Recovered/Not Resolved]
  - Polydactyly [Not Recovered/Not Resolved]
  - Congenital intestinal malformation [Not Recovered/Not Resolved]
  - Foetal exposure during pregnancy [Recovered/Resolved]
  - Cardiac septal defect [Not Recovered/Not Resolved]
  - Poor feeding infant [Unknown]
  - Foetal hypokinesia [Unknown]
  - Hereditary disorder [Unknown]
  - Premature baby [Unknown]
  - Small for dates baby [Unknown]

NARRATIVE: CASE EVENT DATE: 2017
